FAERS Safety Report 17756598 (Version 2)
Quarter: 2020Q2

REPORT INFORMATION
  Report Type: Spontaneous
  Country: CL (occurrence: CL)
  Receive Date: 20200507
  Receipt Date: 20200521
  Transmission Date: 20200714
  Serious: Yes (Other)
  Sender: FDA-Public Use
  Company Number: CL-AMGEN-CHLSP2020024281

PATIENT
  Age: 68 Year
  Sex: Male

DRUGS (3)
  1. NEUPOGEN [Suspect]
     Active Substance: FILGRASTIM
     Indication: IMMUNODEFICIENCY
  2. REVLIMID [Suspect]
     Active Substance: LENALIDOMIDE
     Indication: NON-HODGKIN^S LYMPHOMA
     Dosage: 25 MILLIGRAM, QOD
     Route: 048
     Dates: start: 201910
  3. NEUPOGEN [Suspect]
     Active Substance: FILGRASTIM
     Indication: FEBRILE NEUTROPENIA
     Dosage: UNK UNK, QOD
     Route: 058
     Dates: start: 201912

REACTIONS (5)
  - Respiratory disorder [Recovering/Resolving]
  - Pancytopenia [Not Recovered/Not Resolved]
  - Off label use [Unknown]
  - Bone marrow infiltration [Not Recovered/Not Resolved]
  - Thrombocytopenia [Not Recovered/Not Resolved]

NARRATIVE: CASE EVENT DATE: 201912
